FAERS Safety Report 8798373 (Version 2)
Quarter: 2012Q4

REPORT INFORMATION
  Report Type: 
  Country: US (occurrence: US)
  Receive Date: 20120920
  Receipt Date: 20121106
  Transmission Date: 20130627
  Serious: Yes (Death, Other)
  Sender: FDA-Public Use
  Company Number: US-ROCHE-1131825

PATIENT
  Sex: Female
  Weight: 118 kg

DRUGS (5)
  1. AVASTIN [Suspect]
     Indication: GLIOBLASTOMA MULTIFORME
     Route: 065
     Dates: start: 20110331, end: 201106
  2. TEMODAR [Concomitant]
     Indication: GLIOBLASTOMA MULTIFORME
     Route: 042
  3. CAMPTOSAR [Concomitant]
     Indication: GLIOBLASTOMA MULTIFORME
     Route: 042
  4. KEPPRA [Concomitant]
     Indication: CONVULSION
     Route: 048
  5. TEGRETOL [Concomitant]
     Indication: CONVULSION
     Route: 048

REACTIONS (2)
  - Glioblastoma multiforme [Fatal]
  - Performance status decreased [Unknown]
